FAERS Safety Report 16537889 (Version 1)
Quarter: 2019Q3

REPORT INFORMATION
  Report Type: Spontaneous
  Country: CN (occurrence: CN)
  Receive Date: 20190708
  Receipt Date: 20190708
  Transmission Date: 20191004
  Serious: Yes (Hospitalization, Other)
  Sender: FDA-Public Use
  Company Number: CN-SA-2019SA183080

PATIENT
  Age: 55 Year
  Sex: Male

DRUGS (1)
  1. APROVEL [Suspect]
     Active Substance: IRBESARTAN
     Indication: HYPERTENSION
     Dosage: 150 MG, QD
     Route: 048
     Dates: start: 20190612, end: 20190614

REACTIONS (1)
  - Blood creatinine increased [Recovering/Resolving]

NARRATIVE: CASE EVENT DATE: 20190616
